FAERS Safety Report 5110024-7 (Version None)
Quarter: 2006Q3

REPORT INFORMATION
  Report Type: 
  Country: None (occurrence: None)
  Receive Date: 20060921
  Receipt Date: 20051102
  Transmission Date: 20061208
  Serious: Yes (Other)
  Sender: FDA-Public Use
  Company Number: PHFR2005GB03630

PATIENT
  Age: 42 Year
  Sex: Female

DRUGS (7)
  1. CLOZARIL [Suspect]
     Indication: SCHIZOPHRENIA
     Dosage: 400 MG/DAY
     Route: 048
     Dates: start: 20050409, end: 20060505
  2. MIRTAZAPINE [Concomitant]
     Indication: DEPRESSION
     Dosage: 45 MG/DAY
     Route: 065
  3. OMEPRAZOLE [Concomitant]
     Indication: PEPTIC ULCER
     Dosage: 20 MG/DAY
     Route: 048
  4. CLONAZEPAM [Concomitant]
     Indication: SEDATION
     Dosage: 1 MG/DAY
     Dates: start: 20050503
  5. VENLAFAXIINE HCL [Concomitant]
     Indication: DEPRESSION
     Dosage: 150 MG/DAY
     Route: 048
  6. HYOSCINE HBR HYT [Concomitant]
     Dosage: 900 UG/DAY
     Dates: start: 20051011
  7. CABERGOLINE [Concomitant]
     Indication: HYPERPROLACTINAEMIA
     Dosage: 0.75 MG, BIW
     Route: 048

REACTIONS (5)
  - BASOPHIL COUNT INCREASED [None]
  - BLOOD PROLACTIN DECREASED [None]
  - BLOOD THYROID STIMULATING HORMONE INCREASED [None]
  - EOSINOPHIL COUNT INCREASED [None]
  - PITTING OEDEMA [None]
